FAERS Safety Report 7081292-X (Version None)
Quarter: 2010Q4

REPORT INFORMATION
  Report Type: 
  Country: None (occurrence: None)
  Receive Date: 20101102
  Receipt Date: 20101102
  Transmission Date: 20110411
  Serious: Yes (Disabling)
  Sender: FDA-Public Use
  Company Number: None

PATIENT
  Sex: Female

DRUGS (1)
  1. METHOTREXATE 50MG/2ML; 2ML SDV PARENTA [Suspect]
     Indication: PSORIASIS
     Dosage: 25MG Q WEEKLY SQ
     Route: 058
     Dates: start: 20100901, end: 20101101

REACTIONS (3)
  - APHASIA [None]
  - PRODUCT QUALITY ISSUE [None]
  - VITREOUS FLOATERS [None]
